FAERS Safety Report 5148307-7 (Version None)
Quarter: 2006Q4

REPORT INFORMATION
  Report Type: 
  Country: None (occurrence: None)
  Receive Date: 20061107
  Receipt Date: 20061030
  Transmission Date: 20070319
  Serious: Yes (Other)
  Sender: FDA-Public Use
  Company Number: 146770USA

PATIENT
  Sex: Male

DRUGS (1)
  1. PIMOZIDE TABLETS (PIMOZIDE) [Suspect]
     Indication: SCHIZOPHRENIA
     Dosage: 8 MG
     Dates: start: 19860101

REACTIONS (2)
  - DYSKINESIA [None]
  - SENSORY LOSS [None]
